FAERS Safety Report 5836236-2 (Version None)
Quarter: 2008Q3

REPORT INFORMATION
  Report Type: 
  Country: None (occurrence: None)
  Receive Date: 20080807
  Receipt Date: 20080729
  Transmission Date: 20090109
  Serious: Yes (Other)
  Sender: FDA-Public Use
  Company Number: IN-RANBAXY-2008RR-16836

PATIENT

DRUGS (1)
  1. AMLODIPINE [Suspect]

REACTIONS (1)
  - PARKINSONISM [None]
